FAERS Safety Report 23026616 (Version 4)
Quarter: 2024Q1

REPORT INFORMATION
  Report Type: Spontaneous
  Country: US (occurrence: None)
  Receive Date: 20231004
  Receipt Date: 20240116
  Transmission Date: 20240410
  Serious: Yes (Hospitalization)
  Sender: FDA-Public Use
  Company Number: 2023A219462

PATIENT
  Age: 19422 Day

DRUGS (2)
  1. TEZSPIRE [Suspect]
     Active Substance: TEZEPELUMAB-EKKO
     Indication: Asthma
     Dosage: 210.0MG UNKNOWN
     Route: 058
     Dates: start: 202203
  2. FASENRA [Suspect]
     Active Substance: BENRALIZUMAB
     Indication: Asthma
     Route: 058
     Dates: end: 2022

REACTIONS (6)
  - Asthma [Unknown]
  - Injection site pain [Not Recovered/Not Resolved]
  - Drug ineffective [Unknown]
  - Drug dose omission by device [Unknown]
  - Device leakage [Unknown]
  - Device malfunction [Unknown]

NARRATIVE: CASE EVENT DATE: 20230926
